FAERS Safety Report 25904571 (Version 3)
Quarter: 2025Q4

REPORT INFORMATION
  Report Type: Report from Study
  Country: US (occurrence: US)
  Receive Date: 20251010
  Receipt Date: 20251111
  Transmission Date: 20260118
  Serious: No
  Sender: ACADIA PHARMACEUTICALS
  Company Number: US-ACADIA PHARMACEUTICALS INC.-ACA-2025-TRF-011080

PATIENT
  Age: 36 Year
  Sex: Male
  Weight: 45 kg

DRUGS (7)
  1. DAYBUE [Suspect]
     Active Substance: TROFINETIDE
     Indication: Rett syndrome
     Dosage: 50 MILLILITER, BID
     Route: 048
     Dates: start: 202506
  2. DAYBUE [Suspect]
     Active Substance: TROFINETIDE
     Dosage: 1 MILLILITER, BID
     Route: 065
  3. CLONAZEPAM [Concomitant]
     Active Substance: CLONAZEPAM
  4. CARBAMAZEPINE [Concomitant]
     Active Substance: CARBAMAZEPINE
  5. ZOLOFT [Concomitant]
     Active Substance: SERTRALINE HYDROCHLORIDE
  6. KEPPRA [Concomitant]
     Active Substance: LEVETIRACETAM
  7. DIAZEPAM [Concomitant]
     Active Substance: DIAZEPAM

REACTIONS (2)
  - Diarrhoea [Not Recovered/Not Resolved]
  - Underdose [Unknown]

NARRATIVE: CASE EVENT DATE: 20250601
